FAERS Safety Report 4578837-8 (Version None)
Quarter: 2005Q1

REPORT INFORMATION
  Report Type: 
  Country: None (occurrence: None)
  Receive Date: 20050211
  Receipt Date: 20041027
  Transmission Date: 20050727
  Serious: Yes (Hospitalization, Other)
  Sender: FDA-Public Use
  Company Number: PHBS2004JP14477

PATIENT
  Age: 70 Year
  Sex: Male
  Weight: 71 kg

DRUGS (8)
  1. ADONA [Concomitant]
     Indication: HAEMORRHAGIC DIATHESIS
     Dosage: 30 MG/D
     Route: 048
  2. TRANSAMIN [Concomitant]
     Indication: HAEMORRHAGIC DIATHESIS
     Dosage: 750 MG/D
     Route: 048
  3. PRIMOBOLAN-DEPOT INJ [Concomitant]
     Indication: MYELODYSPLASTIC SYNDROME
     Dosage: 10 MG/D
     Route: 048
     Dates: start: 20040401
  4. BIOFERMIN R [Concomitant]
     Route: 048
  5. DIFLUCAN [Concomitant]
     Dosage: 100 MG/D
     Route: 048
     Dates: start: 20040928, end: 20041116
  6. NEORAL [Suspect]
     Indication: MYELODYSPLASTIC SYNDROME
     Dosage: UNK, UNK
     Route: 048
     Dates: start: 20041001, end: 20041013
  7. NEORAL [Suspect]
     Route: 048
     Dates: start: 20040501
  8. NEORAL [Suspect]
     Dosage: 250 MG/DAY
     Route: 048
     Dates: start: 20040705, end: 20041004

REACTIONS (8)
  - BLOOD CREATININE INCREASED [None]
  - BLOOD UREA INCREASED [None]
  - DRUG LEVEL INCREASED [None]
  - HENOCH-SCHONLEIN PURPURA [None]
  - INFECTION [None]
  - PETECHIAE [None]
  - PYREXIA [None]
  - RENAL IMPAIRMENT [None]
